FAERS Safety Report 9443575 (Version 1)
Quarter: 2013Q3

REPORT INFORMATION
  Report Type: Spontaneous
  Country: SG (occurrence: SG)
  Receive Date: 20130806
  Receipt Date: 20130806
  Transmission Date: 20140515
  Serious: Yes (Other)
  Sender: FDA-Public Use
  Company Number: SG-ALEXION-A201301189

PATIENT
  Age: 10 Month
  Sex: Male

DRUGS (7)
  1. SOLIRIS 300MG [Suspect]
     Indication: HAEMOLYTIC URAEMIC SYNDROME
     Dosage: 300 MG, UNK
     Route: 042
     Dates: start: 20130515
  2. CEFTRIAXONE [Concomitant]
     Dosage: UNK
     Dates: start: 20130506
  3. MEROPENEM [Concomitant]
     Dosage: 160 MG, BID
     Route: 042
  4. TEICOPLANIN [Concomitant]
     Dosage: 30 MG, QD
     Route: 042
  5. NIFEDIPINE [Concomitant]
     Dosage: 2 MG, QID
     Route: 048
  6. LACTEOL FORT [Concomitant]
     Dosage: 1 DF, 1SACHET QD
     Route: 048
  7. CETRIZINE [Concomitant]
     Dosage: UNK

REACTIONS (7)
  - Fluid retention [Recovered/Resolved]
  - Pleural effusion [Recovered/Resolved]
  - Pulmonary oedema [Recovered/Resolved]
  - Hepatomegaly [Recovered/Resolved]
  - Ascites [Recovered/Resolved]
  - Respiratory distress [Recovered/Resolved]
  - Pyrexia [Unknown]
